FAERS Safety Report 6820961-0 (Version None)
Quarter: 2010Q3

REPORT INFORMATION
  Report Type: 
  Country: None (occurrence: None)
  Receive Date: 20100707
  Receipt Date: 20071024
  Transmission Date: 20110219
  Serious: No
  Sender: FDA-Public Use
  Company Number: US-PFIZER INC-2007069582

PATIENT
  Sex: Female

DRUGS (3)
  1. ZOLOFT [Suspect]
     Indication: DEPRESSION
     Route: 048
     Dates: start: 20070226, end: 20070401
  2. ZOLOFT [Suspect]
  3. NORTRIPTYLINE [Suspect]
     Dates: start: 20070401

REACTIONS (1)
  - DRUG INEFFECTIVE [None]
